FAERS Safety Report 11753776 (Version 1)
Quarter: 2015Q4

REPORT INFORMATION
  Report Type: Spontaneous
  Country: US (occurrence: None)
  Receive Date: 20151118
  Receipt Date: 20151118
  Transmission Date: 20160304
  Serious: Yes (Hospitalization)
  Sender: FDA-Public Use
  Company Number: None

PATIENT
  Age: 23 Year
  Sex: Male
  Weight: 80.4 kg

DRUGS (1)
  1. PEGINTERFERON ALFA-2B (PEG-INTRON) [Suspect]
     Active Substance: PEGINTERFERON ALFA-2B
     Dates: end: 20151106

REACTIONS (4)
  - Weight decreased [None]
  - Decreased appetite [None]
  - Nausea [None]
  - Vomiting [None]

NARRATIVE: CASE EVENT DATE: 20151109
